FAERS Safety Report 11856602 (Version 2)
Quarter: 2016Q4

REPORT INFORMATION
  Report Type: Spontaneous
  Country: DK (occurrence: DK)
  Receive Date: 20151221
  Receipt Date: 20161019
  Transmission Date: 20170206
  Serious: Yes (Hospitalization, Disabling)
  Sender: FDA-Public Use
  Company Number: DK-TEVA-618311ACC

PATIENT
  Age: 61 Year
  Sex: Male

DRUGS (2)
  1. MALFIN [Suspect]
     Active Substance: MORPHINE SULFATE
     Indication: PAIN
     Dosage: 10 MILLIGRAM DAILY; 1 TABLET (10 MG) KL. 23.38 ( AT 23.38 PM)
     Route: 048
     Dates: start: 20140227
  2. MORFIN ^SAD^ [Suspect]
     Active Substance: MORPHINE HYDROCHLORIDE
     Indication: PAIN
     Dosage: 15 MG
     Route: 042
     Dates: start: 20140227, end: 20140227

REACTIONS (14)
  - Ileus [Recovered/Resolved]
  - Pyrexia [Unknown]
  - Scar pain [Not Recovered/Not Resolved]
  - Megacolon [Recovered/Resolved]
  - Gastrointestinal oedema [Recovered/Resolved]
  - Abdominal pain [Unknown]
  - Umbilical hernia [Not Recovered/Not Resolved]
  - Constipation [Unknown]
  - Abdominal distension [Not Recovered/Not Resolved]
  - Large intestine perforation [Recovered/Resolved with Sequelae]
  - Colostomy [Recovered/Resolved]
  - Colectomy [Not Recovered/Not Resolved]
  - Constipation [Recovered/Resolved]
  - Bladder catheterisation [Recovered/Resolved]

NARRATIVE: CASE EVENT DATE: 20140227
